FAERS Safety Report 12928657 (Version 1)
Quarter: 2016Q4

REPORT INFORMATION
  Report Type: Spontaneous
  Country: US (occurrence: US)
  Receive Date: 20161110
  Receipt Date: 20161110
  Transmission Date: 20170207
  Serious: No
  Sender: FDA-Public Use
  Company Number: US-BRISTOL-MYERS SQUIBB COMPANY-BMS-2015-094134

PATIENT
  Sex: Male

DRUGS (2)
  1. HYDROXYUREA. [Concomitant]
     Active Substance: HYDROXYUREA
     Indication: PRODUCT USED FOR UNKNOWN INDICATION
     Dosage: UNK
     Route: 065
     Dates: end: 20160108
  2. SPRYCEL [Suspect]
     Active Substance: DASATINIB
     Indication: CHRONIC MYELOID LEUKAEMIA
     Dosage: 100 MG, QD
     Route: 048
     Dates: start: 20151214

REACTIONS (8)
  - Lymphadenopathy [Recovered/Resolved]
  - Rash [Recovering/Resolving]
  - Weight increased [Unknown]
  - Anaemia [Unknown]
  - Energy increased [Unknown]
  - Eye swelling [Unknown]
  - Haemoglobin decreased [Unknown]
  - Swelling face [Unknown]
